FAERS Safety Report 19874747 (Version 4)
Quarter: 2021Q3

REPORT INFORMATION
  Report Type: Spontaneous
  Country: US (occurrence: US)
  Receive Date: 20210922
  Receipt Date: 20210930
  Transmission Date: 20211014
  Serious: Yes (Other)
  Sender: FDA-Public Use
  Company Number: US-BEH-2021136144

PATIENT
  Age: 50 Year
  Sex: Male
  Weight: 82.6 kg

DRUGS (7)
  1. PRIVIGEN [Suspect]
     Active Substance: HUMAN IMMUNOGLOBULIN G
     Dosage: 50 GRAM (4 VIALS)
     Route: 041
     Dates: start: 20210910, end: 20210910
  2. PRIVIGEN [Suspect]
     Active Substance: HUMAN IMMUNOGLOBULIN G
     Dosage: 50 GRAM (1 VIAL)
     Route: 041
     Dates: start: 20210910, end: 20210910
  3. DIPHENHYDRAMINE. [Concomitant]
     Active Substance: DIPHENHYDRAMINE
     Dosage: 25 MILLIGRAM, SINGLE
     Route: 048
     Dates: start: 20210917
  4. PRIVIGEN [Suspect]
     Active Substance: HUMAN IMMUNOGLOBULIN G
     Dosage: 50 GRAM
     Route: 041
     Dates: start: 202102
  5. PRIVIGEN [Suspect]
     Active Substance: HUMAN IMMUNOGLOBULIN G
     Indication: POLYOMAVIRUS VIRAEMIA
     Dosage: 50 GRAM
     Route: 041
     Dates: start: 20210917, end: 20210917
  6. ACETAMINOPHEN. [Concomitant]
     Active Substance: ACETAMINOPHEN
     Dosage: 650 MILLIGRAM, SINGLE
     Route: 048
     Dates: start: 20210917
  7. METHYLPREDNISOLONE. [Concomitant]
     Active Substance: METHYLPREDNISOLONE
     Dosage: 40 MILLIGRAM, SINGLE
     Route: 042
     Dates: start: 20210917

REACTIONS (4)
  - Hypersensitivity [Unknown]
  - Off label use [Unknown]
  - Rash [Unknown]
  - No adverse event [Unknown]

NARRATIVE: CASE EVENT DATE: 20210917
